FAERS Safety Report 21959556 (Version 1)
Quarter: 2023Q1

REPORT INFORMATION
  Report Type: Spontaneous
  Country: US (occurrence: US)
  Receive Date: 20230206
  Receipt Date: 20230206
  Transmission Date: 20230418
  Serious: Yes (Hospitalization, Other)
  Sender: FDA-Public Use
  Company Number: US-AMERICAN REGENT INC-2023000264

PATIENT
  Age: 59 Year
  Sex: Female

DRUGS (9)
  1. DEXAMETHASONE SODIUM PHOSPHATE [Suspect]
     Active Substance: DEXAMETHASONE SODIUM PHOSPHATE
     Indication: Plasma cell myeloma refractory
     Dosage: EVERY TWO WEEKS TO ONE MONTH
     Route: 065
     Dates: start: 2017
  2. DEXAMETHASONE SODIUM PHOSPHATE [Suspect]
     Active Substance: DEXAMETHASONE SODIUM PHOSPHATE
     Dosage: UNK; SHORT COURSE
     Route: 042
     Dates: start: 2019
  3. DEXAMETHASONE SODIUM PHOSPHATE [Suspect]
     Active Substance: DEXAMETHASONE SODIUM PHOSPHATE
     Dosage: UNK; IN COMBINATION WITH CARFILZOMIB AND CYCLOPHOSPHAMIDE
     Route: 065
     Dates: start: 2019
  4. DEXAMETHASONE SODIUM PHOSPHATE [Suspect]
     Active Substance: DEXAMETHASONE SODIUM PHOSPHATE
     Dosage: UNK; IN COMBINATION WITH CYCLOPHOSPHAMIDE, ETOPOSIDE, AND CISPLATIN
     Route: 065
     Dates: start: 2019
  5. CARFILZOMIB [Suspect]
     Active Substance: CARFILZOMIB
     Indication: Plasma cell myeloma refractory
     Dosage: EVERY TWO WEEKS TO ONE MONTH
     Route: 065
     Dates: start: 2017
  6. CARFILZOMIB [Suspect]
     Active Substance: CARFILZOMIB
     Dosage: UNK; IN COMBINATION WITH CYCLOPHOSPHAMIDE AND DEXAMETHASONE
     Route: 065
     Dates: start: 2019
  7. LENALIDOMIDE [Suspect]
     Active Substance: LENALIDOMIDE
     Indication: Plasma cell myeloma refractory
     Dosage: EVERY TWO WEEKS TO ONE MONTH
     Route: 065
     Dates: start: 2017
  8. ASPIRIN [Concomitant]
     Active Substance: ASPIRIN
     Indication: Plasma cell myeloma refractory
     Dosage: LOW DOSE, QD
     Route: 048
     Dates: start: 2017
  9. METHADONE [Concomitant]
     Active Substance: METHADONE HYDROCHLORIDE
     Indication: Drug abuser
     Dosage: UNK
     Route: 065

REACTIONS (3)
  - Central nervous system vasculitis [Unknown]
  - Cerebrovascular accident [Unknown]
  - Product use in unapproved indication [Unknown]

NARRATIVE: CASE EVENT DATE: 20190201
